FAERS Safety Report 22634210 (Version 1)
Quarter: 2023Q2

REPORT INFORMATION
  Report Type: Other
  Country: US (occurrence: None)
  Receive Date: 20230623
  Receipt Date: 20230623
  Transmission Date: 20230721
  Serious: Yes (Hospitalization)
  Sender: FDA-Public Use
  Company Number: US-ROCHE-3371986

PATIENT
  Age: 71 Year
  Sex: Female
  Weight: 95.34 kg

DRUGS (4)
  1. AVASTIN [Suspect]
     Active Substance: BEVACIZUMAB
     Indication: Retinal neovascularisation
     Dosage: EVERY 5 TO 6 WEEKS; INJECTION IN BOTH EYES
     Route: 065
     Dates: end: 20230614
  2. AVASTIN [Suspect]
     Active Substance: BEVACIZUMAB
     Indication: Retinal neovascularisation
  3. AVASTIN [Suspect]
     Active Substance: BEVACIZUMAB
     Indication: Myopia
  4. ELIQUIS [Concomitant]
     Active Substance: APIXABAN
     Indication: Anticoagulant therapy
     Route: 048
     Dates: start: 202301

REACTIONS (7)
  - Pulmonary thrombosis [Recovered/Resolved]
  - Dehydration [Recovered/Resolved]
  - Pruritus [Recovered/Resolved]
  - Loss of consciousness [Recovered/Resolved]
  - Diarrhoea [Recovered/Resolved]
  - Off label use [Unknown]
  - Pain [Unknown]

NARRATIVE: CASE EVENT DATE: 20230101
